FAERS Safety Report 6408422-4 (Version None)
Quarter: 2009Q4

REPORT INFORMATION
  Report Type: 
  Country: None (occurrence: None)
  Receive Date: 20091021
  Receipt Date: 20091016
  Transmission Date: 20100525
  Serious: Yes (Hospitalization)
  Sender: FDA-Public Use
  Company Number: US-BRISTOL-MYERS SQUIBB COMPANY-14821003

PATIENT
  Age: 82 Year
  Sex: Male
  Weight: 71 kg

DRUGS (3)
  1. CARBOPLATIN [Suspect]
     Indication: NON-SMALL CELL LUNG CANCER
     Dosage: INTERRUP ON 1SEP9.START DATE OF COURSE ASSOCIATED WITH EXPEDITED REPORT:25AUG9.D43 TREATMENT HELD
     Dates: start: 20090721
  2. TAXOL [Suspect]
     Indication: NON-SMALL CELL LUNG CANCER
     Dosage: INTERRUP ON 01SEP09.START DATE OF COURSE ASSOCTD WITH EXPEDITED REPORT:25AUG09.D43 TREATMENT HELD
     Dates: start: 20090721
  3. RADIATION THERAPY [Suspect]
     Indication: NON-SMALL CELL LUNG CANCER
     Dosage: 1 DF=7400 CGY NUMBER OF FRACTION:37 NUMBER OF ELAPSED DAYS:55
     Dates: end: 20090915

REACTIONS (1)
  - OESOPHAGITIS [None]
